FAERS Safety Report 8806884 (Version 1)
Quarter: 2012Q4

REPORT INFORMATION
  Report Type: 
  Country: US (occurrence: US)
  Receive Date: 20120925
  Receipt Date: 20120925
  Transmission Date: 20130627
  Serious: No
  Sender: FDA-Public Use
  Company Number: US-B.I. PHARMACEUTICALS,INC./RIDGEFIELD-2012-BP-23134BP

PATIENT
  Sex: Male

DRUGS (6)
  1. PRADAXA [Suspect]
     Indication: ATRIAL FIBRILLATION
     Dosage: 300 mg
     Route: 048
     Dates: start: 2011
  2. NEXIUM [Concomitant]
     Indication: GASTROOESOPHAGEAL REFLUX DISEASE
  3. WELLBUTRIN [Concomitant]
     Indication: DEPRESSION
  4. PROZAC [Concomitant]
     Indication: DEPRESSION
  5. CELEBREX [Concomitant]
     Indication: DEPRESSION
  6. XANAX [Concomitant]
     Indication: DEPRESSION

REACTIONS (1)
  - Nail infection [Not Recovered/Not Resolved]
